FAERS Safety Report 18304515 (Version 2)
Quarter: 2020Q4

REPORT INFORMATION
  Report Type: Spontaneous
  Country: US (occurrence: US)
  Receive Date: 20200924
  Receipt Date: 20201016
  Transmission Date: 20210113
  Serious: No
  Sender: FDA-Public Use
  Company Number: US-ASTRAZENECA-2020SF20266

PATIENT
  Sex: Female

DRUGS (1)
  1. BYDUREON BCISE [Suspect]
     Active Substance: EXENATIDE
     Indication: TYPE 2 DIABETES MELLITUS
     Route: 058
     Dates: start: 202008

REACTIONS (5)
  - Drug dose omission by device [Unknown]
  - Device failure [Unknown]
  - Intentional device misuse [Unknown]
  - Injection site pain [Unknown]
  - Injection site haemorrhage [Unknown]
